FAERS Safety Report 20767859 (Version 1)
Quarter: 2022Q2

REPORT INFORMATION
  Report Type: Report from Study
  Country: ES (occurrence: None)
  Receive Date: 20220429
  Receipt Date: 20220429
  Transmission Date: 20220721
  Serious: Yes (Other)
  Sender: FDA-Public Use
  Company Number: ES-ROCHE-3083165

PATIENT
  Age: 22 Year
  Sex: Female
  Weight: 98 kg

DRUGS (3)
  1. ATEZOLIZUMAB [Suspect]
     Active Substance: ATEZOLIZUMAB
     Indication: Adrenocortical carcinoma
     Dosage: ON 23/DEC/2021, SHE RECEIVED 1200 MG OF ATEZOLIZUMAB IN CYCLE 1.?ON 07/APR/2022, SHE RECEIVED 1200 M
     Route: 065
     Dates: start: 20211223
  2. CABOZANTINIB [Suspect]
     Active Substance: CABOZANTINIB
     Indication: Adrenocortical carcinoma
     Dosage: ON 23/DEC/2021, SHE RECEIVED 40 MG OF CABOZANTINIB IN CYCLE 1.?ON 07/APR/2022, SHE RECEIVED 40 MG OF
     Route: 065
     Dates: start: 20211223
  3. BEMIPARIN [Concomitant]
     Active Substance: BEMIPARIN
     Indication: Anticoagulant therapy

REACTIONS (1)
  - Pulmonary embolism [Not Recovered/Not Resolved]

NARRATIVE: CASE EVENT DATE: 20220413
